FAERS Safety Report 11316761 (Version 3)
Quarter: 2015Q4

REPORT INFORMATION
  Report Type: Spontaneous
  Country: US (occurrence: US)
  Receive Date: 20150728
  Receipt Date: 20151002
  Transmission Date: 20160304
  Serious: No
  Sender: FDA-Public Use
  Company Number: US-PFIZER INC-2015248261

PATIENT
  Age: 74 Year
  Sex: Female

DRUGS (2)
  1. EXEMESTANE. [Suspect]
     Active Substance: EXEMESTANE
     Indication: BREAST CANCER STAGE I
     Dosage: 20 MG, 1X/DAY
  2. EXEMESTANE. [Suspect]
     Active Substance: EXEMESTANE
     Dosage: 25 MG, UNK

REACTIONS (15)
  - Feeling abnormal [Recovered/Resolved]
  - Disorientation [Unknown]
  - Depression [Recovered/Resolved]
  - Muscle spasms [Recovered/Resolved]
  - Neuropathy peripheral [Recovered/Resolved]
  - Hyperhidrosis [Recovered/Resolved]
  - Breast pain [Recovered/Resolved]
  - Dysuria [Recovered/Resolved]
  - Nausea [Recovered/Resolved]
  - Hot flush [Recovered/Resolved]
  - Bone pain [Recovered/Resolved]
  - Constipation [Recovered/Resolved]
  - Malaise [Unknown]
  - Dizziness [Recovered/Resolved]
  - Incorrect dose administered [Unknown]
